FAERS Safety Report 4281623-X (Version None)
Quarter: 2004Q1

REPORT INFORMATION
  Report Type: 
  Country: None (occurrence: None)
  Receive Date: 20040120
  Receipt Date: 20031017
  Transmission Date: 20041129
  Serious: No
  Sender: FDA-Public Use
  Company Number: 2003-10-3143

PATIENT
  Age: 49 Year
  Sex: Female
  Weight: 62.5964 kg

DRUGS (1)
  1. CLARINEX [Suspect]
     Indication: HYPERSENSITIVITY
     Dosage: 5MG QD ORAL
     Route: 048
     Dates: start: 20031006

REACTIONS (3)
  - BLOOD GLUCOSE INCREASED [None]
  - DIZZINESS [None]
  - DRUG INEFFECTIVE [None]
